FAERS Safety Report 6152179-1 (Version None)
Quarter: 2009Q2

REPORT INFORMATION
  Report Type: 
  Country: None (occurrence: None)
  Receive Date: 20090410
  Receipt Date: 20090403
  Transmission Date: 20091009
  Serious: Yes (Hospitalization)
  Sender: FDA-Public Use
  Company Number: HU-GENENTECH-274548

PATIENT
  Sex: Male
  Weight: 68 kg

DRUGS (14)
  1. BLINDED ANTI-CD40 [Suspect]
     Indication: DIFFUSE LARGE B-CELL LYMPHOMA
     Dosage: 4 MG/KG, X1
     Route: 042
     Dates: start: 20081209
  2. BLINDED PLACEBO [Suspect]
     Indication: DIFFUSE LARGE B-CELL LYMPHOMA
     Dosage: 4 MG/KG, X1
     Route: 042
     Dates: start: 20081209
  3. BLINDED ANTI-CD40 [Suspect]
     Dosage: 2 MG/KG, X1
     Route: 042
     Dates: start: 20081209, end: 20081209
  4. BLINDED PLACEBO [Suspect]
     Dosage: 2 MG/KG, X1
     Route: 042
     Dates: start: 20081209, end: 20081209
  5. RITUXAN [Suspect]
     Indication: DIFFUSE LARGE B-CELL LYMPHOMA
     Dosage: 375 MG/M2, Q3W
     Route: 042
     Dates: start: 20081208
  6. ETOPOSIDE [Suspect]
     Indication: DIFFUSE LARGE B-CELL LYMPHOMA
     Dosage: 100 MG/M2, Q3W
     Route: 042
     Dates: start: 20081210
  7. CARBOPLATIN [Suspect]
     Indication: DIFFUSE LARGE B-CELL LYMPHOMA
     Dosage: 5 UNK, Q3W
     Route: 042
     Dates: start: 20081211
  8. IFOSFAMIDE [Suspect]
     Indication: DIFFUSE LARGE B-CELL LYMPHOMA
     Dosage: 5 G/M2, Q3W
     Route: 042
     Dates: start: 20081211
  9. LANSOPRAZOLE [Concomitant]
     Indication: DRUG USE FOR UNKNOWN INDICATION
     Dosage: UNK
     Dates: start: 20040101
  10. CLOPIDOGREL [Concomitant]
     Indication: DRUG USE FOR UNKNOWN INDICATION
     Dosage: UNK
     Dates: start: 20040101, end: 20081220
  11. PERINDOPRIL ERBUMINE [Concomitant]
     Indication: DRUG USE FOR UNKNOWN INDICATION
     Dosage: UNK
     Dates: start: 20040101
  12. BISOPROLOL FUMARATE [Concomitant]
     Indication: DRUG USE FOR UNKNOWN INDICATION
     Dosage: UNK
     Dates: start: 20040101
  13. RED BLOOD CELL CONCENTRATE [Concomitant]
     Indication: DRUG USE FOR UNKNOWN INDICATION
     Dosage: UNK
     Dates: start: 20081220
  14. PLATELETS [Concomitant]
     Indication: DRUG USE FOR UNKNOWN INDICATION
     Dosage: UNK
     Dates: start: 20081220

REACTIONS (1)
  - FEBRILE NEUTROPENIA [None]
